FAERS Safety Report 7897169-3 (Version None)
Quarter: 2011Q4

REPORT INFORMATION
  Report Type: 
  Country: None (occurrence: None)
  Receive Date: 20111107
  Receipt Date: 20111024
  Transmission Date: 20120403
  Serious: Yes (Other)
  Sender: FDA-Public Use
  Company Number: US-ELI_LILLY_AND_COMPANY-US201110007232

PATIENT
  Sex: Female

DRUGS (2)
  1. LITHIUM CITRATE [Concomitant]
  2. PROZAC [Suspect]
     Indication: BIPOLAR DISORDER
     Dosage: UNK

REACTIONS (1)
  - MYELODYSPLASTIC SYNDROME [None]
